FAERS Safety Report 8053537-0 (Version None)
Quarter: 2012Q1

REPORT INFORMATION
  Report Type: 
  Country: None (occurrence: None)
  Receive Date: 20120118
  Receipt Date: 20120117
  Transmission Date: 20120608
  Serious: No
  Sender: FDA-Public Use
  Company Number: US-B.I. PHARMACEUTICALS,INC./RIDGEFIELD-2012-BP-00926BP

PATIENT
  Sex: Female

DRUGS (10)
  1. COZAAR [Concomitant]
     Indication: HYPERTENSION
     Route: 048
  2. SYMBICORT [Concomitant]
     Indication: EMPHYSEMA
  3. LASIX [Concomitant]
     Indication: SWELLING
     Route: 048
  4. PRADAXA [Suspect]
     Indication: ATRIAL FIBRILLATION
     Dosage: 300 MG
     Route: 048
     Dates: start: 20111201
  5. CLONAZEPAM [Concomitant]
     Indication: RESTLESS LEGS SYNDROME
  6. TRAZODONE HCL [Concomitant]
     Indication: DEPRESSION
     Route: 048
  7. CALCIUM PLUS VITAMIN D [Concomitant]
     Indication: SUPPLEMENTATION THERAPY
     Route: 048
  8. ASPIRIN [Concomitant]
     Indication: PROPHYLAXIS
     Route: 048
  9. GLYCOLAX [Concomitant]
     Indication: CONSTIPATION
     Route: 048
  10. ALBUTEROL [Concomitant]
     Indication: EMPHYSEMA
     Route: 055

REACTIONS (1)
  - NOCTURIA [None]
